FAERS Safety Report 6740200-9 (Version None)
Quarter: 2010Q2

REPORT INFORMATION
  Report Type: 
  Country: None (occurrence: None)
  Receive Date: 20100525
  Receipt Date: 20100519
  Transmission Date: 20101027
  Serious: Yes (Other)
  Sender: FDA-Public Use
  Company Number: A0856485A

PATIENT
  Age: 31 Year
  Sex: Male

DRUGS (2)
  1. CIMETIDINE [Suspect]
     Dosage: 600MG FOUR TIMES PER DAY
     Route: 048
     Dates: start: 20050601, end: 20050901
  2. ASTELIN [Concomitant]

REACTIONS (11)
  - CONFUSIONAL STATE [None]
  - CRYING [None]
  - DEPRESSED MOOD [None]
  - DIZZINESS [None]
  - DRY MOUTH [None]
  - HALLUCINATION [None]
  - HYPOAESTHESIA [None]
  - IMPAIRED HEALING [None]
  - OFF LABEL USE [None]
  - TENSION [None]
  - VISION BLURRED [None]
